FAERS Safety Report 24034949 (Version 1)
Quarter: 2024Q3

REPORT INFORMATION
  Report Type: Spontaneous
  Country: CA (occurrence: CA)
  Receive Date: 20240701
  Receipt Date: 20240701
  Transmission Date: 20241016
  Serious: Yes (Other)
  Sender: GENMAB
  Company Number: CA-GENMAB-2024-02279

PATIENT
  Age: 81 Year
  Sex: Male

DRUGS (1)
  1. EPCORITAMAB [Suspect]
     Active Substance: EPCORITAMAB
     Indication: Diffuse large B-cell lymphoma refractory
     Dosage: 48 MILLIGRAM, CYCLICAL
     Route: 058

REACTIONS (1)
  - Mass [Unknown]
